FAERS Safety Report 7849096 (Version 4)
Quarter: 2015Q1

REPORT INFORMATION
  Report Type: Spontaneous
  Country: US (occurrence: US)
  Receive Date: 20110310
  Receipt Date: 20150302
  Transmission Date: 20150721
  Serious: Yes (Other)
  Sender: FDA-Public Use
  Company Number: US-BAYER-2011-021240

PATIENT
  Age: 24 Year
  Sex: Female
  Weight: 73.92 kg

DRUGS (5)
  1. YASMIN [Suspect]
     Active Substance: DROSPIRENONE\ETHINYL ESTRADIOL
     Indication: CONTRACEPTION
  2. AMOXICILLIN SODIUM W/CLAVULANATE POTASSIUM [Concomitant]
     Active Substance: AMOXICILLIN\CLAVULANATE POTASSIUM
     Dosage: 500 - 125 MG
     Route: 048
     Dates: start: 20090620
  3. IBUPROFEN. [Concomitant]
     Active Substance: IBUPROFEN
     Dosage: 800 MG, PRN
     Route: 048
     Dates: start: 20090620
  4. HYDROCODONE BITARTRATE AND ACETAMINOPHEN [Concomitant]
     Active Substance: ACETAMINOPHEN\HYDROCODONE BITARTRATE
     Dosage: 500 - 125 MG
     Route: 048
     Dates: start: 20090620
  5. YASMIN [Suspect]
     Active Substance: DROSPIRENONE\ETHINYL ESTRADIOL
     Indication: ACNE
     Dosage: UNK
     Dates: start: 200610, end: 200909

REACTIONS (4)
  - Pain [Recovered/Resolved]
  - Vasculitis cerebral [Recovered/Resolved]
  - Injury [Recovered/Resolved]
  - Migraine [None]

NARRATIVE: CASE EVENT DATE: 20090921
